FAERS Safety Report 7807695-0 (Version None)
Quarter: 2011Q4

REPORT INFORMATION
  Report Type: 
  Country: None (occurrence: None)
  Receive Date: 20111011
  Receipt Date: 20110927
  Transmission Date: 20120403
  Serious: Yes (Hospitalization)
  Sender: FDA-Public Use
  Company Number: US-ACTELION-A-NJ2011-54730

PATIENT

DRUGS (4)
  1. VENTAVIS [Suspect]
     Indication: PULMONARY ARTERIAL HYPERTENSION
     Dosage: UNK
     Route: 055
     Dates: start: 20101203, end: 20110901
  2. COUMADIN [Concomitant]
  3. LASIX [Concomitant]
  4. TRACLEER [Concomitant]
     Indication: PULMONARY ARTERIAL HYPERTENSION
     Dosage: UNK
     Route: 048
     Dates: start: 20101123, end: 20101201

REACTIONS (5)
  - TREMOR [None]
  - NAUSEA [None]
  - BRAIN NEOPLASM [None]
  - FALL [None]
  - CONVULSION [None]
